FAERS Safety Report 5207924-6 (Version None)
Quarter: 2007Q1

REPORT INFORMATION
  Report Type: 
  Country: None (occurrence: None)
  Receive Date: 20070115
  Receipt Date: 20070108
  Transmission Date: 20070707
  Serious: Yes (Death, Hospitalization, Other)
  Sender: FDA-Public Use
  Company Number: AU-ELI_LILLY_AND_COMPANY-AU200612002576

PATIENT
  Age: 14 Year
  Sex: Female

DRUGS (12)
  1. ZYPREXA [Suspect]
     Indication: AGITATION
     Dosage: 2.5 MG, UNK
     Route: 048
     Dates: start: 20040801, end: 20040101
  2. EFFEXOR [Concomitant]
     Indication: DEPRESSION
     Dosage: 75 MG, UNK
     Dates: start: 20040812, end: 20040901
  3. EFFEXOR [Concomitant]
     Dosage: 150 MG, DAILY (1/D)
     Dates: start: 20040901, end: 20041008
  4. ENDEP [Concomitant]
     Indication: INSOMNIA
     Dosage: 10 MG, UNK
     Dates: start: 20040727, end: 20040901
  5. ZOLPIDEM TARTRATE [Concomitant]
     Indication: INSOMNIA
     Dosage: 10 MG, UNK
     Dates: start: 20040901, end: 20041001
  6. FLUOXETINE [Suspect]
     Indication: DEPRESSION
     Dosage: 20 MG, DAILY (1/D)
     Dates: start: 20040501
  7. FLUOXETINE [Suspect]
     Dosage: 40 MG, DAILY (1/D)
     Dates: end: 20040701
  8. CANNABIS [Concomitant]
     Dates: start: 20040801
  9. DIANE - 35 ^BERLEX^ [Concomitant]
     Dates: start: 20040701
  10. TETREX [Concomitant]
     Dosage: 250 MG, 2/D
     Dates: start: 20040101
  11. DOXYCYCLINE [Concomitant]
     Dates: start: 20040301
  12. AKAMIN [Concomitant]
     Dosage: 100 MG, 2/D
     Dates: start: 20040501

REACTIONS (12)
  - AGGRESSION [None]
  - AKATHISIA [None]
  - COMPLETED SUICIDE [None]
  - DRUG INEFFECTIVE [None]
  - INFLUENZA LIKE ILLNESS [None]
  - INSOMNIA [None]
  - INTENTIONAL SELF-INJURY [None]
  - SOCIAL PHOBIA [None]
  - SOMNOLENCE [None]
  - SUICIDAL IDEATION [None]
  - SUICIDE ATTEMPT [None]
  - TREMOR [None]
